FAERS Safety Report 4933264-6 (Version None)
Quarter: 2006Q1

REPORT INFORMATION
  Report Type: 
  Country: None (occurrence: None)
  Receive Date: 20060306
  Receipt Date: 20050920
  Transmission Date: 20060701
  Serious: Yes (Hospitalization, Disabling)
  Sender: FDA-Public Use
  Company Number: US-MERCK-0512USA01110

PATIENT
  Age: 66 Year
  Sex: Male
  Weight: 61 kg

DRUGS (10)
  1. VIOXX [Suspect]
     Indication: ARTHRALGIA
     Route: 048
     Dates: start: 20001127, end: 20030801
  2. VIOXX [Suspect]
     Indication: BACK PAIN
     Route: 048
     Dates: start: 20001127, end: 20030801
  3. LIPITOR [Concomitant]
     Indication: BLOOD CHOLESTEROL INCREASED
     Route: 065
     Dates: start: 19970101
  4. SYNTHROID [Concomitant]
     Indication: THYROID DISORDER
     Route: 065
  5. CARISOPRODOL [Concomitant]
     Route: 065
  6. IBUPROFEN [Concomitant]
     Route: 065
  7. AMBIEN [Concomitant]
     Route: 065
  8. VIAGRA [Concomitant]
     Route: 065
  9. ASPIRIN [Concomitant]
     Indication: PROPHYLAXIS
     Route: 065
     Dates: start: 19950101
  10. ANALGESIC OR ANESTHETIC (UNSPECIFIED) [Concomitant]
     Route: 065

REACTIONS (12)
  - ARTHROPATHY [None]
  - DRY MOUTH [None]
  - FLUID RETENTION [None]
  - GALLBLADDER DISORDER [None]
  - GLAUCOMA [None]
  - HERNIA [None]
  - HIATUS HERNIA [None]
  - HYPERTENSION [None]
  - NEPHROLITHIASIS [None]
  - ODYNOPHAGIA [None]
  - SKIN CANCER [None]
  - TRANSIENT ISCHAEMIC ATTACK [None]
